FAERS Safety Report 8499498-1 (Version None)
Quarter: 2012Q3

REPORT INFORMATION
  Report Type: 
  Country: None (occurrence: None)
  Receive Date: 20120710
  Receipt Date: 20120628
  Transmission Date: 20120928
  Serious: Yes (Hospitalization)
  Sender: FDA-Public Use
  Company Number: DE-ELI_LILLY_AND_COMPANY-DE201206009458

PATIENT
  Sex: Female

DRUGS (5)
  1. ERGOCALCIFEROL [Concomitant]
  2. FORTEO [Suspect]
     Indication: OSTEOPOROSIS
     Dosage: UNK, QD
     Route: 058
     Dates: start: 20111219
  3. DEKRISTOL [Concomitant]
     Dosage: UNK, OTHER
  4. THEOPHYLLINE [Concomitant]
  5. MORPHINE [Concomitant]

REACTIONS (3)
  - BREAST ABSCESS [None]
  - WEIGHT DECREASED [None]
  - ANAEMIA [None]
